FAERS Safety Report 20063903 (Version 1)
Quarter: 2021Q4

REPORT INFORMATION
  Report Type: Spontaneous
  Country: US (occurrence: None)
  Receive Date: 20211111
  Receipt Date: 20211111
  Transmission Date: 20220303
  Serious: Yes (Death)
  Sender: FDA-Public Use
  Company Number: None

PATIENT
  Age: 80 Year
  Sex: Male

DRUGS (12)
  1. ACYCLOVIR [Suspect]
     Active Substance: ACYCLOVIR
  2. AMLODIPINE [Suspect]
     Active Substance: AMLODIPINE BESYLATE
  3. FISH OIL [Suspect]
     Active Substance: FISH OIL
  4. FUROSEMIDE [Suspect]
     Active Substance: FUROSEMIDE
  5. LOSARTAN [Suspect]
     Active Substance: LOSARTAN
  6. METOPROLOL TARTRATE [Suspect]
     Active Substance: METOPROLOL TARTRATE
  7. NEXIUM [Suspect]
     Active Substance: ESOMEPRAZOLE MAGNESIUM
  8. POLYETHYLENE GLYCOL [Suspect]
     Active Substance: POLYETHYLENE GLYCOL
  9. SIMVASTATIN [Suspect]
     Active Substance: SIMVASTATIN
  10. TERAZOSIN [Suspect]
     Active Substance: TERAZOSIN HYDROCHLORIDE
  11. TRADJENTA [Suspect]
     Active Substance: LINAGLIPTIN
  12. MINERALS\VITAMINS [Suspect]
     Active Substance: MINERALS\VITAMINS

REACTIONS (1)
  - Death [None]

NARRATIVE: CASE EVENT DATE: 20210928
